FAERS Safety Report 7084117-1 (Version None)
Quarter: 2010Q4

REPORT INFORMATION
  Report Type: 
  Country: None (occurrence: None)
  Receive Date: 20101026
  Receipt Date: 20101011
  Transmission Date: 20110411
  Serious: Yes (Other)
  Sender: FDA-Public Use
  Company Number: 014531

PATIENT
  Age: 50 Year
  Sex: Female

DRUGS (10)
  1. CIMZIA [Suspect]
     Indication: CROHN'S DISEASE
     Dosage: (SUBCUTANEOUS)
     Route: 058
     Dates: start: 20090810
  2. CIMZIA [Suspect]
     Indication: RHEUMATOID ARTHRITIS
     Dosage: (SUBCUTANEOUS)
     Route: 058
     Dates: start: 20090810
  3. HUMIRA [Suspect]
     Indication: CROHN'S DISEASE
     Dates: start: 20080701, end: 20090701
  4. REMICADE [Suspect]
     Indication: CROHN'S DISEASE
     Dates: start: 20040501, end: 20061201
  5. REMICADE [Suspect]
     Indication: CROHN'S DISEASE
     Dates: start: 20061201, end: 20070901
  6. TRAZODONE HCL [Concomitant]
  7. PREMARIN [Concomitant]
  8. ROBINUL [Concomitant]
  9. ULTRAM [Concomitant]
  10. METHOTREXATE [Concomitant]

REACTIONS (1)
  - LYMPHOMA [None]
